FAERS Safety Report 16468516 (Version 6)
Quarter: 2019Q4

REPORT INFORMATION
  Report Type: Report from Study
  Country: JP (occurrence: JP)
  Receive Date: 20190624
  Receipt Date: 20191106
  Transmission Date: 20200122
  Serious: Yes (Other)
  Sender: FDA-Public Use
  Company Number: JP-ASTELLAS-2019JP012378

PATIENT
  Age: 8 Decade
  Sex: Male
  Weight: 60 kg

DRUGS (12)
  1. BIOFERMIN R [Concomitant]
     Active Substance: DIETARY SUPPLEMENT\PROBIOTICS
     Indication: PROPHYLAXIS
     Dosage: 3 DF/DAY, UNKNOWN FREQ.
     Route: 048
  2. LASIX [Concomitant]
     Active Substance: FUROSEMIDE
     Indication: OEDEMA
     Dosage: 20 MG/DAY, UNKNOWN FREQ.
     Route: 048
  3. MAGMITT [Concomitant]
     Active Substance: MAGNESIUM OXIDE
     Indication: CONSTIPATION
     Dosage: 990 MG/DAY, UNKNOWN FREQ.
     Route: 048
  4. ASP2215 [Suspect]
     Active Substance: GILTERITINIB
     Route: 048
     Dates: start: 20190123, end: 20190206
  5. ASP2215 [Suspect]
     Active Substance: GILTERITINIB
     Route: 048
     Dates: start: 20190315, end: 20190405
  6. ASP2215 [Suspect]
     Active Substance: GILTERITINIB
     Route: 048
     Dates: start: 20190215, end: 20190301
  7. ASP2215 [Suspect]
     Active Substance: GILTERITINIB
     Route: 048
     Dates: start: 20190531
  8. FLUCONAZOLE. [Concomitant]
     Active Substance: FLUCONAZOLE
     Indication: PROPHYLAXIS
     Dosage: 200 MG/DAY, UNKNOWN FREQ.
     Route: 048
  9. ASP2215 [Suspect]
     Active Substance: GILTERITINIB
     Indication: ACUTE MYELOID LEUKAEMIA RECURRENT
     Route: 048
     Dates: start: 20181211, end: 20190118
  10. VONOPRAZAN [Concomitant]
     Active Substance: VONOPRAZAN
     Indication: PROPHYLAXIS
     Dosage: 10 MG/DAY, UNKNOWN FREQ.
     Route: 048
  11. FEBURIC [Concomitant]
     Active Substance: FEBUXOSTAT
     Indication: HYPERURICAEMIA
     Dosage: 10 MG/DAY, UNKNOWN FREQ.
     Route: 048
  12. ASP2215 [Suspect]
     Active Substance: GILTERITINIB
     Route: 048
     Dates: start: 20190412, end: 20190426

REACTIONS (9)
  - Bone marrow failure [Unknown]
  - Blood lactate dehydrogenase increased [Not Recovered/Not Resolved]
  - Aspartate aminotransferase increased [Not Recovered/Not Resolved]
  - Platelet count decreased [Recovered/Resolved]
  - Blood creatinine increased [Not Recovered/Not Resolved]
  - Eczema asteatotic [Unknown]
  - Blood creatinine decreased [Unknown]
  - Restless legs syndrome [Unknown]
  - Diverticulitis [Recovered/Resolved]

NARRATIVE: CASE EVENT DATE: 20181215
